FAERS Safety Report 15105240 (Version 1)
Quarter: 2018Q3

REPORT INFORMATION
  Report Type: Spontaneous
  Country: US (occurrence: US)
  Receive Date: 20180704
  Receipt Date: 20180704
  Transmission Date: 20181010
  Serious: No
  Sender: FDA-Public Use
  Company Number: US-AUROBINDO-AUR-APU-2018-022909

PATIENT
  Age: 61 Year
  Sex: Male
  Weight: 86.1 kg

DRUGS (2)
  1. CLOPIDOGREL [Suspect]
     Active Substance: CLOPIDOGREL BISULFATE
     Indication: LOW DENSITY LIPOPROTEIN
  2. CLOPIDOGREL [Suspect]
     Active Substance: CLOPIDOGREL BISULFATE
     Indication: BLOOD CHOLESTEROL
     Dosage: 1 DOSAGE FORM, DAILY
     Dates: start: 20180423, end: 20180423

REACTIONS (4)
  - Neck pain [Unknown]
  - Oropharyngeal pain [Unknown]
  - Chest pain [Unknown]
  - Nasal discomfort [Unknown]

NARRATIVE: CASE EVENT DATE: 20180423
